FAERS Safety Report 10488692 (Version 1)
Quarter: 2014Q4

REPORT INFORMATION
  Report Type: Report from Study
  Country: US (occurrence: US)
  Receive Date: 20141002
  Receipt Date: 20141002
  Transmission Date: 20150528
  Serious: Yes (Other)
  Sender: FDA-Public Use
  Company Number: US-JNJFOC-20140925624

PATIENT
  Sex: Female
  Weight: 61.24 kg

DRUGS (3)
  1. INVOKAMET [Suspect]
     Active Substance: CANAGLIFLOZIN\METFORMIN HYDROCHLORIDE
     Indication: TYPE 2 DIABETES MELLITUS
     Dosage: 50/1000 MG
     Route: 048
     Dates: start: 20140925
  2. LISINOPRIL. [Concomitant]
     Active Substance: LISINOPRIL
  3. INVOKAMET [Suspect]
     Active Substance: CANAGLIFLOZIN\METFORMIN HYDROCHLORIDE
     Indication: TYPE 2 DIABETES MELLITUS
     Dosage: 50/1000 MG
     Route: 048

REACTIONS (6)
  - Blood glucose increased [Unknown]
  - Dizziness [Unknown]
  - Gastric disorder [Unknown]
  - Drug ineffective [Unknown]
  - Insomnia [Unknown]
  - Hunger [Unknown]
